FAERS Safety Report 19237860 (Version 1)
Quarter: 2021Q2

REPORT INFORMATION
  Report Type: Spontaneous
  Country: CN (occurrence: CN)
  Receive Date: 20210510
  Receipt Date: 20210510
  Transmission Date: 20210717
  Serious: Yes (Other)
  Sender: FDA-Public Use
  Company Number: CN-009507513-2105CHN000380

PATIENT
  Age: 48 Year
  Sex: Male
  Weight: 55 kg

DRUGS (2)
  1. SODIUM CHLORIDE. [Concomitant]
     Active Substance: SODIUM CHLORIDE
     Indication: INFECTION
     Dosage: 100 MILLILITER, Q12H (ALSO REPORTED AS ONCE PER DAY), 30 GTT/MIN
     Route: 042
     Dates: start: 20210415, end: 20210420
  2. TIENAM [Suspect]
     Active Substance: CILASTATIN SODIUM\IMIPENEM
     Indication: INFECTION
     Dosage: 0.5 GRAM, Q12H (ALSO REPORTED AS ONCE PER DAY), 30 GTT/MIN
     Route: 041
     Dates: start: 20210415, end: 20210420

REACTIONS (2)
  - Epilepsy [Recovering/Resolving]
  - Condition aggravated [Unknown]

NARRATIVE: CASE EVENT DATE: 202104
